FAERS Safety Report 9282824 (Version 6)
Quarter: 2014Q2

REPORT INFORMATION
  Report Type: Report from Study
  Country: ZA (occurrence: ZA)
  Receive Date: 20130510
  Receipt Date: 20140506
  Transmission Date: 20141212
  Serious: Yes (Hospitalization)
  Sender: FDA-Public Use
  Company Number: PHHY2013ZA045258

PATIENT
  Age: 67 Year
  Sex: Female
  Weight: 52 kg

DRUGS (4)
  1. ACLASTA [Suspect]
     Indication: OSTEOPOROSIS
     Dosage: 5 MG/100ML ONCE A YEAR
     Route: 042
     Dates: start: 2010
  2. ACLASTA [Suspect]
     Dosage: 5 MG/100ML ONCE A YEAR
     Route: 042
  3. ACLASTA [Suspect]
     Dosage: 5 MG/100ML ONCE A YEAR
     Route: 042
  4. ACLASTA [Suspect]
     Dosage: 5 MG/100ML ONCE A YEAR
     Route: 042
     Dates: start: 20130430

REACTIONS (15)
  - Cerebrovascular accident [Recovering/Resolving]
  - Slow speech [Recovering/Resolving]
  - Aphasia [Recovering/Resolving]
  - Hiccups [Recovering/Resolving]
  - Heart rate increased [Recovering/Resolving]
  - Tremor [Recovering/Resolving]
  - Hypertension [Recovering/Resolving]
  - Headache [Recovered/Resolved]
  - Vomiting [Recovering/Resolving]
  - Hyperhidrosis [Recovering/Resolving]
  - Nausea [Recovered/Resolved]
  - Mental impairment [Recovering/Resolving]
  - Memory impairment [Recovering/Resolving]
  - Aggression [Recovering/Resolving]
  - Confusional state [Recovering/Resolving]
